FAERS Safety Report 7053634-2 (Version None)
Quarter: 2010Q4

REPORT INFORMATION
  Report Type: 
  Country: None (occurrence: None)
  Receive Date: 20101020
  Receipt Date: 20101014
  Transmission Date: 20110411
  Serious: Yes (Other)
  Sender: FDA-Public Use
  Company Number: TN-ROCHE-734496

PATIENT
  Sex: Male
  Weight: 65 kg

DRUGS (2)
  1. PEGASYS [Suspect]
     Dosage: DOSE 180
     Route: 058
     Dates: start: 20091207, end: 20100315
  2. COPEGUS [Suspect]
     Dosage: DOSE; 1000  FREQUENCY: DAILY
     Route: 048
     Dates: start: 20091207, end: 20100315

REACTIONS (1)
  - FEBRILE BONE MARROW APLASIA [None]
